FAERS Safety Report 5941224-1 (Version None)
Quarter: 2008Q4

REPORT INFORMATION
  Report Type: 
  Country: None (occurrence: None)
  Receive Date: 20081104
  Receipt Date: 20081023
  Transmission Date: 20090506
  Serious: Yes (Other)
  Sender: FDA-Public Use
  Company Number: JP-PFIZER INC-2008090061

PATIENT
  Age: 74 Year
  Sex: Male

DRUGS (1)
  1. ZYVOX [Suspect]
     Dosage: DAILY DOSE:1200MG
     Route: 042
     Dates: start: 20081021

REACTIONS (1)
  - BLOOD CREATINE PHOSPHOKINASE INCREASED [None]
